FAERS Safety Report 5691445-0 (Version None)
Quarter: 2008Q1

REPORT INFORMATION
  Report Type: 
  Country: None (occurrence: None)
  Receive Date: 20080331
  Receipt Date: 20080321
  Transmission Date: 20080703
  Serious: Yes (Hospitalization)
  Sender: FDA-Public Use
  Company Number: 163-21880-08031447

PATIENT
  Age: 57 Year
  Sex: Female

DRUGS (3)
  1. REVLIMID [Suspect]
     Indication: MULTIPLE MYELOMA
     Dosage: 25 MG, EVERY DAY FOR 21 DAYS OUT OF 28 DAYS, ORAL
     Route: 048
     Dates: start: 20080220, end: 20080314
  2. COUMADIN [Concomitant]
  3. LIPITOR [Concomitant]

REACTIONS (10)
  - ANAEMIA [None]
  - BONE PAIN [None]
  - CONSTIPATION [None]
  - DYSPEPSIA [None]
  - HAEMORRHAGE [None]
  - JOINT SWELLING [None]
  - MUSCULOSKELETAL CHEST PAIN [None]
  - NAUSEA [None]
  - NEUROPATHY PERIPHERAL [None]
  - PELVIC PAIN [None]
